FAERS Safety Report 10523379 (Version 1)
Quarter: 2014Q4

REPORT INFORMATION
  Report Type: Spontaneous
  Country: FR (occurrence: FR)
  Receive Date: 20141016
  Receipt Date: 20141016
  Transmission Date: 20150528
  Serious: Yes (Hospitalization, Other)
  Sender: FDA-Public Use
  Company Number: FR-ASTRAZENECA-2014SE76838

PATIENT
  Age: 29845 Day
  Sex: Male

DRUGS (6)
  1. INEGY [Concomitant]
     Active Substance: EZETIMIBE\SIMVASTATIN
     Dosage: 10 MG/20 MG, 1 DF EVERY DAY
     Route: 048
  2. STILNOX [Concomitant]
     Active Substance: ZOLPIDEM TARTRATE
     Route: 048
  3. AMLODIPINE [Concomitant]
     Active Substance: AMLODIPINE BESYLATE
     Dosage: 5 MG EVERY DAY, SR
     Route: 048
  4. CIFLOX [Concomitant]
     Active Substance: CIPROFLOXACIN
     Indication: URINARY TRACT INFECTION
     Route: 048
     Dates: start: 201407, end: 201407
  5. KARDEGIC [Concomitant]
     Active Substance: ASPIRIN LYSINE
     Route: 048
  6. INEXIUM [Suspect]
     Active Substance: ESOMEPRAZOLE
     Route: 048

REACTIONS (8)
  - Blood luteinising hormone decreased [Unknown]
  - Blood testosterone decreased [Unknown]
  - Inappropriate antidiuretic hormone secretion [Recovering/Resolving]
  - Blood prolactin increased [Unknown]
  - Pituitary tumour benign [Unknown]
  - Asthenia [Unknown]
  - Lung disorder [Unknown]
  - Hyponatraemia [Recovering/Resolving]

NARRATIVE: CASE EVENT DATE: 20140730
